FAERS Safety Report 24911523 (Version 1)
Quarter: 2025Q1

REPORT INFORMATION
  Report Type: Spontaneous
  Country: BR (occurrence: BR)
  Receive Date: 20250131
  Receipt Date: 20250131
  Transmission Date: 20250408
  Serious: Yes (Hospitalization)
  Sender: TORRENT PHARMA INC.
  Company Number: BR-TORRENT-00006362

PATIENT
  Sex: Female

DRUGS (2)
  1. LAMOTRIGINE [Suspect]
     Active Substance: LAMOTRIGINE
     Indication: Product used for unknown indication
     Dosage: HALF A TABLET EVERY 12 HOURS, NASOGASTRIC TUBE
     Route: 045
  2. APIXABAN [Concomitant]
     Active Substance: APIXABAN
     Indication: Product used for unknown indication
     Dosage: 1 TABLET EVERY 12 HOURS
     Route: 045

REACTIONS (7)
  - Dysphagia [Not Recovered/Not Resolved]
  - Tremor [Not Recovered/Not Resolved]
  - Wrong technique in product usage process [Unknown]
  - Disease progression [Unknown]
  - Therapeutic procedure [Recovered/Resolved]
  - Incorrect dose administered [Unknown]
  - Product solubility abnormal [Unknown]
